FAERS Safety Report 5826337-7 (Version None)
Quarter: 2008Q3

REPORT INFORMATION
  Report Type: 
  Country: None (occurrence: None)
  Receive Date: 20080724
  Receipt Date: 20080710
  Transmission Date: 20090109
  Serious: Yes (Death)
  Sender: FDA-Public Use
  Company Number: 920#3#2008-00013

PATIENT
  Age: 19 Year
  Sex: Male
  Weight: 40 kg

DRUGS (9)
  1. NIFEDIPINE [Suspect]
     Indication: DRUG USE FOR UNKNOWN INDICATION
     Dosage: 15MG, 3 IN 1 D
  2. VALLERGAN [Suspect]
     Indication: DRUG USE FOR UNKNOWN INDICATION
     Dosage: TRANSPLACENTAL
     Route: 064
  3. OMEPRAZOLE [Suspect]
     Indication: DRUG USE FOR UNKNOWN INDICATION
     Dosage: 40MG, 1 IN 1 D
  4. ATROVENT [Concomitant]
  5. DOMPERIDONE [Concomitant]
  6. FLIXOTIDE [Concomitant]
  7. GAVISCON [Concomitant]
  8. SEREVENT [Concomitant]
  9. VENTOLIN [Concomitant]

REACTIONS (7)
  - BLOOD PRESSURE DECREASED [None]
  - CONTUSION [None]
  - IDIOPATHIC THROMBOCYTOPENIC PURPURA [None]
  - MALAISE [None]
  - NO THERAPEUTIC RESPONSE [None]
  - SUDDEN CARDIAC DEATH [None]
  - WHITE BLOOD CELL COUNT INCREASED [None]
